FAERS Safety Report 5833723-8 (Version None)
Quarter: 2008Q3

REPORT INFORMATION
  Report Type: 
  Country: None (occurrence: None)
  Receive Date: 20080801
  Receipt Date: 20080721
  Transmission Date: 20090109
  Serious: Yes (Other)
  Sender: FDA-Public Use
  Company Number: PERC20080071

PATIENT
  Age: 41 Year
  Sex: Female

DRUGS (4)
  1. PERCOCET [Suspect]
     Indication: PAIN
     Dosage: PER ORAL
     Route: 048
  2. METHADONE HCL [Suspect]
     Indication: PAIN
     Dosage: 20 MG BID,10 MG AT NOON, PER ORAL
     Route: 048
  3. LAMOTRIGINE [Concomitant]
  4. PIROXICAM [Concomitant]

REACTIONS (7)
  - ASTHENIA [None]
  - HEADACHE [None]
  - HYPOPNOEA [None]
  - NOCTURIA [None]
  - SLEEP APNOEA SYNDROME [None]
  - SNORING [None]
  - SOMNOLENCE [None]
